FAERS Safety Report 18649482 (Version 1)
Quarter: 2020Q4

REPORT INFORMATION
  Report Type: Spontaneous
  Country: GR (occurrence: GR)
  Receive Date: 20201222
  Receipt Date: 20201222
  Transmission Date: 20210114
  Serious: No
  Sender: FDA-Public Use
  Company Number: GR-LUPIN PHARMACEUTICALS INC.-2020-00292

PATIENT
  Age: 35 Year
  Sex: Female

DRUGS (4)
  1. MAGNESIUM [Suspect]
     Active Substance: MAGNESIUM
     Indication: SUPPLEMENTATION THERAPY
     Dosage: UNK (THROUGHOUT PREGNANCY)
     Route: 065
  2. IRON [Suspect]
     Active Substance: IRON
     Indication: SUPPLEMENTATION THERAPY
     Dosage: UNK (THROUGHOUT PREGNANCY)
     Route: 065
  3. UTROGESTAN [Suspect]
     Active Substance: PROGESTERONE
     Indication: PRODUCT USED FOR UNKNOWN INDICATION
     Dosage: UNK (FROM 8TH TO 12TH WEEK)
     Route: 065
  4. CALCIUM [Suspect]
     Active Substance: CALCIUM
     Indication: SUPPLEMENTATION THERAPY
     Dosage: UNK (FROM 8TH WEEK TO UNTILL DELIVERY)
     Route: 065

REACTIONS (3)
  - Oral pigmentation [Unknown]
  - Exposure during pregnancy [None]
  - Nail pigmentation [Unknown]
